FAERS Safety Report 5798068-3 (Version None)
Quarter: 2008Q3

REPORT INFORMATION
  Report Type: 
  Country: None (occurrence: None)
  Receive Date: 20080702
  Receipt Date: 20080625
  Transmission Date: 20090109
  Serious: Yes (Other)
  Sender: FDA-Public Use
  Company Number: US-KINGPHARMUSA00001-K200800736

PATIENT

DRUGS (1)
  1. CORGARD [Suspect]
     Indication: LONG QT SYNDROME
     Dates: start: 20070609

REACTIONS (1)
  - HYPOGLYCAEMIC SEIZURE [None]
